FAERS Safety Report 25955356 (Version 1)
Quarter: 2025Q4

REPORT INFORMATION
  Report Type: Report from Study
  Country: EU (occurrence: EU)
  Receive Date: 20251024
  Receipt Date: 20251024
  Transmission Date: 20260118
  Serious: Yes (Death, Hospitalization, Other)
  Sender: IPSEN BIOPHARMACEUTICALS, INC.
  Company Number: EU-EPIZYME, INC.-2022FREPZ64381108

PATIENT
  Age: 59 Year
  Sex: Female
  Weight: 67 kg

DRUGS (6)
  1. TAZEMETOSTAT HYDROBROMIDE [Suspect]
     Active Substance: TAZEMETOSTAT HYDROBROMIDE
     Indication: Small intestine carcinoma metastatic
     Dosage: 1600 MG
     Route: 048
     Dates: start: 20220811, end: 20221012
  2. TAZEMETOSTAT HYDROBROMIDE [Suspect]
     Active Substance: TAZEMETOSTAT HYDROBROMIDE
     Dosage: 800 MG. CUMULATIVE DOSE 82400 MG
     Route: 048
  3. DURVALUMAB [Suspect]
     Active Substance: DURVALUMAB
     Indication: Small intestine carcinoma metastatic
     Dosage: 1120 MG
     Route: 042
     Dates: start: 20220901, end: 20220901
  4. LERCANIDIPINE HYDROCHLORIDE [Concomitant]
     Active Substance: LERCANIDIPINE HYDROCHLORIDE
  5. LATANOPROST [Concomitant]
     Active Substance: LATANOPROST
  6. ACETAMINOPHEN\OPIUM [Concomitant]
     Active Substance: ACETAMINOPHEN\OPIUM

REACTIONS (4)
  - General physical health deterioration [Fatal]
  - Disease progression [Fatal]
  - Cholangitis [Recovered/Resolved]
  - Pneumonia [Recovered/Resolved]

NARRATIVE: CASE EVENT DATE: 20221002
